FAERS Safety Report 21837119 (Version 1)
Quarter: 2023Q1

REPORT INFORMATION
  Report Type: Spontaneous
  Country: US (occurrence: US)
  Receive Date: 20230109
  Receipt Date: 20230109
  Transmission Date: 20230417
  Serious: Yes (Hospitalization, Other)
  Sender: FDA-Public Use
  Company Number: US-BRISTOL-MYERS SQUIBB COMPANY-2023-002750

PATIENT
  Age: 74 Year
  Sex: Female

DRUGS (1)
  1. ENASIDENIB [Suspect]
     Active Substance: ENASIDENIB
     Indication: Acute myeloid leukaemia
     Dosage: FREQUENCY: DAILY

REACTIONS (1)
  - Differentiation syndrome [Unknown]
